FAERS Safety Report 4750004-4 (Version None)
Quarter: 2005Q3

REPORT INFORMATION
  Report Type: 
  Country: None (occurrence: None)
  Receive Date: 20050822
  Receipt Date: 20050808
  Transmission Date: 20060218
  Serious: Yes (Other)
  Sender: FDA-Public Use
  Company Number: B0390382A

PATIENT
  Age: 30 Year
  Sex: Female

DRUGS (8)
  1. LAMIVUDINE [Suspect]
     Indication: TROPICAL SPASTIC PARESIS
     Dosage: ORAL
     Route: 048
  2. RETROVIR [Suspect]
     Indication: TROPICAL SPASTIC PARESIS
     Dosage: ORAL
     Route: 048
  3. METHOTREXATE [Concomitant]
  4. CYTARABINE [Concomitant]
  5. CYCLOPHOSPHAMIDE [Concomitant]
  6. VINCRISTINE [Concomitant]
  7. DOXORUBICIN HYDROCHLORIDE [Concomitant]
  8. DEXAMETHASONE [Concomitant]

REACTIONS (3)
  - DRUG TOXICITY [None]
  - INFECTION [None]
  - NEUTROPENIA [None]
